FAERS Safety Report 9061642 (Version 2)
Quarter: 2013Q1

REPORT INFORMATION
  Report Type: Spontaneous
  Country: GR (occurrence: GR)
  Receive Date: 20130204
  Receipt Date: 20130308
  Transmission Date: 20140127
  Serious: No
  Sender: FDA-Public Use
  Company Number: PHHY2013GR007121

PATIENT
  Age: 53 Year
  Sex: Female

DRUGS (1)
  1. TASIGNA [Suspect]
     Dosage: 800 MG, DAILY
     Dates: start: 201110

REACTIONS (6)
  - Hepatic enzyme increased [Recovered/Resolved]
  - Transaminases abnormal [Recovered/Resolved]
  - Abdominal pain upper [Recovered/Resolved]
  - Gastritis [Recovered/Resolved]
  - Nausea [Recovered/Resolved]
  - Oesophagitis [Recovered/Resolved]
